FAERS Safety Report 9516373 (Version 3)
Quarter: 2013Q4

REPORT INFORMATION
  Report Type: Report from Study
  Country: US (occurrence: US)
  Receive Date: 20130911
  Receipt Date: 20131007
  Transmission Date: 20140711
  Serious: Yes (Other)
  Sender: FDA-Public Use
  Company Number: US-ACTELION-A-US2013-87041

PATIENT
  Age: 76 Year
  Sex: Female

DRUGS (17)
  1. TRACLEER [Suspect]
     Indication: PULMONARY ARTERIAL HYPERTENSION
     Dosage: 125 MG, BID
     Route: 048
     Dates: start: 200602, end: 20120801
  2. TRACLEER [Suspect]
     Dosage: 62.5 MG, BID
     Route: 048
     Dates: start: 200601, end: 200602
  3. TRACLEER [Suspect]
     Dosage: 62.5 MG, BID
     Route: 048
     Dates: start: 20120802
  4. ADCIRCA [Concomitant]
  5. COUMADIN [Concomitant]
  6. LASIX [Concomitant]
  7. ALDACTONE [Concomitant]
  8. LORAZEPAM [Concomitant]
  9. IRON [Concomitant]
  10. POTASSIUM [Concomitant]
  11. RIFAXIMIN [Concomitant]
  12. ROBAXIN [Concomitant]
  13. PREDNISONE [Concomitant]
  14. KLONOPIN [Concomitant]
  15. PRILOSEC [Concomitant]
  16. PHENERGAN [Concomitant]
  17. LYRICA [Concomitant]

REACTIONS (9)
  - Hepatic encephalopathy [Unknown]
  - Confusional state [Unknown]
  - Hepatic cirrhosis [Unknown]
  - Hepatic enzyme increased [Unknown]
  - Aspartate aminotransferase increased [Unknown]
  - Alanine aminotransferase increased [Unknown]
  - Blood alkaline phosphatase increased [Unknown]
  - International normalised ratio increased [Unknown]
  - Prothrombin time prolonged [Unknown]
